FAERS Safety Report 10199230 (Version 1)
Quarter: 2014Q2

REPORT INFORMATION
  Report Type: Spontaneous
  Country: US (occurrence: US)
  Receive Date: 20140527
  Receipt Date: 20140527
  Transmission Date: 20141212
  Serious: No
  Sender: FDA-Public Use
  Company Number: US-VIVUS-2014V1000199

PATIENT
  Age: 79 Year
  Sex: Male
  Weight: 127.12 kg

DRUGS (13)
  1. STENDRA [Suspect]
     Indication: ERECTILE DYSFUNCTION
     Route: 048
     Dates: start: 20140406
  2. LISINOPRIL [Concomitant]
  3. JANUVIA [Concomitant]
  4. NEXIUM [Concomitant]
  5. SIMVASTATIN [Concomitant]
  6. BYSTOLIC [Concomitant]
  7. POTASSIUM [Concomitant]
  8. FUROSEMIDE [Concomitant]
  9. ASPIRIN [Concomitant]
  10. VESICARE [Concomitant]
  11. VICODIN ES [Concomitant]
  12. ZOLPIDEM [Concomitant]
  13. SYMBICORT [Concomitant]
     Indication: ERECTILE DYSFUNCTION

REACTIONS (2)
  - Drug ineffective [Unknown]
  - Erectile dysfunction [Unknown]
